FAERS Safety Report 4318132-5 (Version None)
Quarter: 2004Q1

REPORT INFORMATION
  Report Type: 
  Country: None (occurrence: None)
  Receive Date: 20040317
  Receipt Date: 20040107
  Transmission Date: 20041129
  Serious: Yes (Hospitalization)
  Sender: FDA-Public Use
  Company Number: US-GLAXOSMITHKLINE-A0493821A

PATIENT
  Sex: Female

DRUGS (26)
  1. AVANDIA [Suspect]
     Indication: DIABETES MELLITUS NON-INSULIN-DEPENDENT
     Route: 048
     Dates: start: 19991206
  2. GLUCOPHAGE [Concomitant]
     Dosage: 500MG TWICE PER DAY
  3. AXID [Concomitant]
     Dosage: 150MG THREE TIMES PER DAY
  4. HUMULIN 70/30 [Concomitant]
  5. XANAX [Concomitant]
  6. CARDIZEM [Concomitant]
  7. PREVACID [Concomitant]
  8. SEPTRA [Concomitant]
  9. IMDUR [Concomitant]
  10. LASIX [Concomitant]
  11. POTASSIUM [Concomitant]
  12. COMBIVENT [Concomitant]
  13. BAYCOL [Concomitant]
  14. SYNTHROID [Concomitant]
  15. ZOLOFT [Concomitant]
  16. AMBIEN [Concomitant]
  17. XANAX [Concomitant]
  18. CALCIUM [Concomitant]
  19. PRAVACHOL [Concomitant]
  20. ALPRAZOLAM [Concomitant]
  21. ASPIRIN [Concomitant]
  22. FLOVENT [Concomitant]
  23. HUMIBID [Concomitant]
  24. MAVIK [Concomitant]
  25. TOPROL-XL [Concomitant]
  26. TRIAMTERENE [Concomitant]

REACTIONS (39)
  - ANAEMIA [None]
  - ANGINA PECTORIS [None]
  - ANGINA UNSTABLE [None]
  - AORTIC STENOSIS [None]
  - ASTHENIA [None]
  - BASE EXCESS POSITIVE [None]
  - BLOOD BICARBONATE INCREASED [None]
  - BLOOD PH INCREASED [None]
  - BLOOD POTASSIUM DECREASED [None]
  - BLOOD UREA INCREASED [None]
  - CARDIAC FAILURE CONGESTIVE [None]
  - CARDIAC STRESS TEST ABNORMAL [None]
  - CELLULITIS [None]
  - CHEST DISCOMFORT [None]
  - CHEST PAIN [None]
  - CORONARY ARTERY DISEASE [None]
  - CREATININE RENAL CLEARANCE DECREASED [None]
  - DEHYDRATION [None]
  - DIASTOLIC DYSFUNCTION [None]
  - DISEASE RECURRENCE [None]
  - DYSPNOEA [None]
  - FLUID OVERLOAD [None]
  - FLUID RETENTION [None]
  - HAEMATURIA [None]
  - HEART INJURY [None]
  - HYPOAESTHESIA [None]
  - HYPOALBUMINAEMIA [None]
  - HYPOKALAEMIA [None]
  - NAUSEA [None]
  - NECK PAIN [None]
  - OEDEMA PERIPHERAL [None]
  - PCO2 DECREASED [None]
  - PLEURAL EFFUSION [None]
  - POST PROCEDURAL COMPLICATION [None]
  - PROTEIN URINE PRESENT [None]
  - PYREXIA [None]
  - REFUSAL OF TREATMENT BY PATIENT [None]
  - THERAPY NON-RESPONDER [None]
  - TREATMENT NONCOMPLIANCE [None]
